FAERS Safety Report 9305710 (Version 1)
Quarter: 2013Q2

REPORT INFORMATION
  Report Type: Spontaneous
  Country: US (occurrence: US)
  Receive Date: 20130523
  Receipt Date: 20130523
  Transmission Date: 20140414
  Serious: Yes (Other)
  Sender: FDA-Public Use
  Company Number: US-BAYER-2013-063145

PATIENT
  Age: 25 Year
  Sex: Female

DRUGS (3)
  1. YAZ [Suspect]
     Indication: CONTRACEPTION
     Dosage: 3MG/0.02MG
     Route: 048
     Dates: start: 201303
  2. YAZ [Suspect]
     Indication: HORMONE LEVEL ABNORMAL
  3. YAZ [Suspect]
     Indication: MENSTRUATION IRREGULAR

REACTIONS (5)
  - Dyspnoea [Recovered/Resolved]
  - Vision blurred [Recovered/Resolved]
  - Hypoaesthesia [Recovered/Resolved]
  - Paraesthesia [Recovered/Resolved]
  - Heart rate increased [None]
